FAERS Safety Report 7776557-X (Version None)
Quarter: 2011Q3

REPORT INFORMATION
  Report Type: 
  Country: None (occurrence: None)
  Receive Date: 20110922
  Receipt Date: 20110922
  Transmission Date: 20111222
  Serious: Yes (Hospitalization)
  Sender: FDA-Public Use
  Company Number: None

PATIENT
  Sex: Female
  Weight: 84.82 kg

DRUGS (2)
  1. CARBOPLATIN [Suspect]
     Dosage: 620 MG
  2. TAXOL [Suspect]
     Dosage: 326 MG

REACTIONS (6)
  - STAPHYLOCOCCAL INFECTION [None]
  - RENAL FAILURE ACUTE [None]
  - PLATELET COUNT DECREASED [None]
  - ANTIBIOTIC RESISTANT STAPHYLOCOCCUS TEST POSITIVE [None]
  - DIARRHOEA [None]
  - THROMBOCYTOPENIA [None]
